FAERS Safety Report 21446613 (Version 1)
Quarter: 2022Q4

REPORT INFORMATION
  Report Type: Report from Study
  Country: AU (occurrence: AU)
  Receive Date: 20221012
  Receipt Date: 20221012
  Transmission Date: 20230112
  Serious: Yes (Death, Hospitalization, Other)
  Sender: FDA-Public Use
  Company Number: AU-BRISTOL-MYERS SQUIBB COMPANY-2022-076436

PATIENT
  Age: 86 Year
  Sex: Male
  Weight: 60 kg

DRUGS (9)
  1. NIVOLUMAB [Suspect]
     Active Substance: NIVOLUMAB
     Indication: Adenocarcinoma gastric
     Dosage: 2 CYCLES 4 WEEKS
     Route: 042
     Dates: start: 20220614, end: 20220628
  2. NIVOLUMAB [Suspect]
     Active Substance: NIVOLUMAB
     Dosage: DRUG WITHDRAWN
     Route: 042
     Dates: end: 20220705
  3. IDRONOXIL [Suspect]
     Active Substance: IDRONOXIL
     Indication: Adenocarcinoma gastric
     Dosage: 3 CYCLES 6 WEEKS
     Route: 054
     Dates: start: 20220531, end: 20220704
  4. IDRONOXIL [Suspect]
     Active Substance: IDRONOXIL
     Dosage: DRUG WITHDRAWN
     Route: 054
     Dates: end: 20220705
  5. ENOXAPARIN SODIUM [Concomitant]
     Active Substance: ENOXAPARIN SODIUM
     Indication: Prophylaxis
     Route: 058
     Dates: start: 20220706
  6. POTASSIUM K 20 [Concomitant]
     Indication: Hyperkalaemia
     Dosage: 2 TABS PO BID
     Route: 048
     Dates: start: 20220414, end: 20220615
  7. MEDIPULV [Concomitant]
     Indication: Skin abrasion
     Dosage: 1 X PUFF TOPICALLY PRN
     Dates: start: 20220605, end: 20220607
  8. STREPSILS [LIDOCAINE] [Concomitant]
     Indication: Nasopharyngitis
     Dosage: 1 LOSENGE PRN
     Dates: start: 20220622, end: 20220622
  9. DICLOFENAC [Concomitant]
     Active Substance: DICLOFENAC
     Indication: Musculoskeletal stiffness
     Dosage: TOPICAL APPLICATION PRN
     Route: 061
     Dates: start: 20220701

REACTIONS (5)
  - Hepatic failure [Recovered/Resolved]
  - Adenocarcinoma gastric [Fatal]
  - Myositis [Recovered/Resolved]
  - Pneumonia [Recovered/Resolved]
  - Myocardial infarction [Recovered/Resolved]

NARRATIVE: CASE EVENT DATE: 20220705
